FAERS Safety Report 10833438 (Version 3)
Quarter: 2015Q1

REPORT INFORMATION
  Report Type: Spontaneous
  Country: JP (occurrence: JP)
  Receive Date: 20150219
  Receipt Date: 20150303
  Transmission Date: 20150721
  Serious: Yes (Hospitalization)
  Sender: FDA-Public Use
  Company Number: JP-JNJFOC-20150208185

PATIENT
  Age: 68 Year
  Sex: Male

DRUGS (4)
  1. ANTEBATE [Concomitant]
     Active Substance: BETAMETHASONE DIPROPIONATE
     Indication: PSORIASIS
     Route: 061
     Dates: start: 200512
  2. BONALFA [Concomitant]
     Indication: PSORIASIS
     Route: 061
     Dates: start: 200512
  3. ANTEBATE [Concomitant]
     Active Substance: BETAMETHASONE DIPROPIONATE
     Indication: PSORIASIS
     Route: 061
     Dates: start: 200512
  4. STELARA [Suspect]
     Active Substance: USTEKINUMAB
     Indication: PSORIASIS
     Route: 058
     Dates: start: 20141227, end: 20141227

REACTIONS (3)
  - Sepsis [Recovered/Resolved]
  - Pneumonia bacterial [Recovered/Resolved]
  - Multi-organ failure [Recovered/Resolved]

NARRATIVE: CASE EVENT DATE: 20150119
